FAERS Safety Report 9926716 (Version 1)
Quarter: 2014Q1

REPORT INFORMATION
  Report Type: Spontaneous
  Country: US (occurrence: US)
  Receive Date: 20140226
  Receipt Date: 20140226
  Transmission Date: 20141002
  Serious: No
  Sender: FDA-Public Use
  Company Number: US-AMGEN-USASP2013077977

PATIENT
  Age: 41 Year
  Sex: Female
  Weight: 54.42 kg

DRUGS (2)
  1. ENBREL [Suspect]
     Indication: PRODUCT USED FOR UNKNOWN INDICATION
     Dosage: 50 MG, QWK
     Route: 058
  2. PERCOCET                           /00867901/ [Concomitant]
     Dosage: 10-325 MG
     Route: 048

REACTIONS (2)
  - Psoriasis [Unknown]
  - Nasopharyngitis [Unknown]
